FAERS Safety Report 22092464 (Version 1)
Quarter: 2023Q1

REPORT INFORMATION
  Report Type: Spontaneous
  Country: GB (occurrence: GB)
  Receive Date: 20230314
  Receipt Date: 20230314
  Transmission Date: 20230418
  Serious: No
  Sender: FDA-Public Use
  Company Number: None

PATIENT
  Age: 43 Year
  Sex: Female
  Weight: 82.2 kg

DRUGS (15)
  1. TOLVAPTAN [Suspect]
     Active Substance: TOLVAPTAN
     Indication: Congenital cystic kidney disease
     Dosage: 60 MILLIGRAM (TABLET)
     Route: 048
     Dates: start: 20180313
  2. TOLVAPTAN [Suspect]
     Active Substance: TOLVAPTAN
     Dosage: 30 MILLIGRAM (TABLET)
     Route: 048
     Dates: start: 20180313
  3. TOLVAPTAN [Suspect]
     Active Substance: TOLVAPTAN
     Dosage: 90 MILLIGRAM (TABLET)
     Route: 048
     Dates: start: 20180417
  4. TOLVAPTAN [Suspect]
     Active Substance: TOLVAPTAN
     Dosage: 30 MILLIGRAM (TABLET)
     Route: 048
     Dates: start: 20180417
  5. TOLVAPTAN [Suspect]
     Active Substance: TOLVAPTAN
     Dosage: 45 MILLIGRAM (TABLET)
     Route: 048
     Dates: start: 20190212
  6. TOLVAPTAN [Suspect]
     Active Substance: TOLVAPTAN
     Dosage: 15 MILLIGRAM (TABLET)
     Route: 048
     Dates: start: 20190212
  7. AMLODIPINE [Concomitant]
     Active Substance: AMLODIPINE BESYLATE
     Indication: Hypertension
     Dosage: 5 MILLIGRAM, QD (1 DAY)
     Route: 048
     Dates: start: 20171010, end: 20200211
  8. BECLOMETHASONE [Concomitant]
     Active Substance: BECLOMETHASONE
     Indication: Hypersensitivity
     Dosage: 1 DOSAGE FORM
     Route: 045
     Dates: start: 20181101
  9. EPIPEN [Concomitant]
     Active Substance: EPINEPHRINE
     Indication: Product used for unknown indication
     Dosage: 300 MICROGRAM (AS NEEDED)
     Route: 030
     Dates: start: 20180220
  10. LORATADINE [Concomitant]
     Active Substance: LORATADINE
     Indication: Hypersensitivity
     Dosage: 10 MILLIGRAM, PRN
     Route: 048
     Dates: start: 20180515
  11. PANTOPRAZOLE [Concomitant]
     Active Substance: PANTOPRAZOLE
     Indication: Prophylaxis against gastrointestinal ulcer
     Dosage: 20 MILLIGRAM, AS NEEDED
     Route: 048
     Dates: start: 20181101, end: 20181211
  12. RAMIPRIL [Concomitant]
     Active Substance: RAMIPRIL
     Indication: Product used for unknown indication
     Dosage: 5 MILLIGRAM, QD (1DAY)
     Route: 048
     Dates: start: 20180220
  13. RANITIDINE [Concomitant]
     Active Substance: RANITIDINE
     Indication: Prophylaxis against gastrointestinal ulcer
     Dosage: 300 MILLIGRAM, QD (1 DAY), 150 MG, BID
     Route: 048
     Dates: start: 20180710, end: 201907
  14. ALBUTEROL [Concomitant]
     Active Substance: ALBUTEROL
     Indication: Product used for unknown indication
     Dosage: 2 DOSAGE FORM, 2 PUFF, AS NEEDED
     Route: 048
     Dates: start: 19780101
  15. SERETIDE [Concomitant]
     Active Substance: FLUTICASONE PROPIONATE\SALMETEROL XINAFOATE
     Indication: Product used for unknown indication
     Dosage: 2 DOSAGE FORM, QD (1 DAY), 1 PUFF, BID
     Route: 048
     Dates: start: 197801

REACTIONS (6)
  - Dehydration [Recovered/Resolved]
  - Fatigue [Not Recovered/Not Resolved]
  - Menstrual disorder [Recovered/Resolved]
  - Nausea [Not Recovered/Not Resolved]
  - Swelling face [Recovered/Resolved]
  - Vomiting [Recovered/Resolved]

NARRATIVE: CASE EVENT DATE: 20180801
